FAERS Safety Report 25072562 (Version 2)
Quarter: 2025Q3

REPORT INFORMATION
  Report Type: Spontaneous
  Country: CA (occurrence: CA)
  Receive Date: 20250313
  Receipt Date: 20250725
  Transmission Date: 20251021
  Serious: Yes (Other)
  Sender: CELLTRION
  Company Number: CA-CELLTRION INC.-2025CA007257

PATIENT

DRUGS (1)
  1. INFLIXIMAB [Suspect]
     Active Substance: INFLIXIMAB
     Indication: Crohn^s disease
     Dosage: MAINTENANCE - 120 MG - SC (SUBCUTANEOUS) EVERY 2 WEEKS / 120 MILLIGRAM 1 EVERY 2 WEEKS
     Route: 058
     Dates: start: 20250126

REACTIONS (6)
  - Anal fissure [Unknown]
  - Migraine [Unknown]
  - Joint stiffness [Unknown]
  - Fatigue [Unknown]
  - Diarrhoea [Unknown]
  - Haematochezia [Unknown]
